FAERS Safety Report 21857609 (Version 4)
Quarter: 2023Q1

REPORT INFORMATION
  Report Type: Report from Study
  Country: CA (occurrence: CA)
  Receive Date: 20230113
  Receipt Date: 20230228
  Transmission Date: 20230417
  Serious: Yes (Hospitalization, Other)
  Sender: FDA-Public Use
  Company Number: CA-JNJFOC-20230114594

PATIENT
  Age: 53 Year
  Sex: Female

DRUGS (2)
  1. REMICADE [Suspect]
     Active Substance: INFLIXIMAB
     Indication: Crohn^s disease
     Route: 041
     Dates: start: 20230106
  2. REMICADE [Suspect]
     Active Substance: INFLIXIMAB
     Dosage: ON 23-FEB-2023, THE PATIENT PRESENTED FOR INFUSION. THIS WAS PATIENT^S 3RD INDUCTION DOSE.
     Route: 041

REACTIONS (3)
  - Eructation [Unknown]
  - Infusion related reaction [Recovering/Resolving]
  - Crohn^s disease [Not Recovered/Not Resolved]

NARRATIVE: CASE EVENT DATE: 20230106
